FAERS Safety Report 6254239-3 (Version None)
Quarter: 2009Q2

REPORT INFORMATION
  Report Type: 
  Country: None (occurrence: None)
  Receive Date: 20090630
  Receipt Date: 20080721
  Transmission Date: 20091009
  Serious: Yes (Other)
  Sender: FDA-Public Use
  Company Number: US-SEPTODONT-200800217

PATIENT
  Age: 40 Year
  Sex: Female

DRUGS (2)
  1. ARTICAINE HYDROCHLORIDE WITH EPINEPHRINE 1:100000 [Suspect]
     Indication: LOCAL ANAESTHESIA
     Dosage: 1.8 ML 1X / TOTAL DENTAL
     Route: 004
     Dates: start: 20080313, end: 20080313
  2. LORATADINE [Concomitant]

REACTIONS (3)
  - ANXIETY [None]
  - CONSCIOUSNESS FLUCTUATING [None]
  - PALPITATIONS [None]
